FAERS Safety Report 9121367 (Version 2)
Quarter: 2013Q1

REPORT INFORMATION
  Report Type: Spontaneous
  Country: JP (occurrence: JP)
  Receive Date: 20130225
  Receipt Date: 20130321
  Transmission Date: 20140127
  Serious: No
  Sender: FDA-Public Use
  Company Number: JP-BRISTOL-MYERS SQUIBB COMPANY-17403361

PATIENT
  Age: 74 Year
  Sex: Male

DRUGS (5)
  1. METGLUCO [Suspect]
     Indication: TYPE 2 DIABETES MELLITUS
     Dosage: DOSE:250MG FROM 17JAN2012?500MG AROUND 15NOV12?750MG FROM 20NOV12
     Route: 048
     Dates: start: 20120117
  2. VILDAGLIPTIN [Concomitant]
     Indication: TYPE 2 DIABETES MELLITUS
     Dosage: DOSE:50MG?EQUA
     Route: 048
     Dates: start: 20111026
  3. ACTOS [Concomitant]
     Indication: TYPE 2 DIABETES MELLITUS
     Dosage: DOSE:30MG
     Route: 048
     Dates: start: 20061004
  4. EXFORGE [Concomitant]
     Indication: HYPERTENSION
     Route: 048
     Dates: start: 20111206
  5. EPLERENONE [Concomitant]
     Indication: HYPERTENSION
     Dosage: SELARA
     Route: 048
     Dates: start: 20120904

REACTIONS (2)
  - Amnesia [Recovered/Resolved]
  - Face oedema [Recovered/Resolved]
